FAERS Safety Report 23281478 (Version 1)
Quarter: 2023Q4

REPORT INFORMATION
  Report Type: Spontaneous
  Country: CH (occurrence: CH)
  Receive Date: 20231211
  Receipt Date: 20231211
  Transmission Date: 20240110
  Serious: Yes (Other)
  Sender: FDA-Public Use
  Company Number: CH-GILEAD-2023-0653989

PATIENT
  Age: 49 Year
  Sex: Female

DRUGS (1)
  1. TRODELVY [Suspect]
     Active Substance: SACITUZUMAB GOVITECAN-HZIY
     Indication: Triple negative breast cancer
     Route: 065

REACTIONS (3)
  - Liver injury [Not Recovered/Not Resolved]
  - Fatigue [Unknown]
  - Intentional product use issue [Not Recovered/Not Resolved]
